FAERS Safety Report 26186536 (Version 1)
Quarter: 2025Q4

REPORT INFORMATION
  Report Type: Report from Study
  Country: US (occurrence: US)
  Receive Date: 20251222
  Receipt Date: 20251222
  Transmission Date: 20260118
  Serious: Yes (Other)
  Sender: ROCHE
  Company Number: US-ROCHE-10000063344

PATIENT
  Age: 51 Year
  Sex: Male

DRUGS (2)
  1. LUCENTIS [Suspect]
     Active Substance: RANIBIZUMAB
     Indication: Retinal oedema
     Dosage: INJECT 0.5 MG VIA INTRAVITREAL ADMINISTRATION INTO EACH EYE EVERY 6 WEEK(S)
  2. LUCENTIS [Suspect]
     Active Substance: RANIBIZUMAB
     Indication: Retinal neovascularisation

REACTIONS (3)
  - Off label use [Unknown]
  - Retinal oedema [Unknown]
  - Eye disorder [Unknown]
